FAERS Safety Report 6510272-5 (Version None)
Quarter: 2009Q4

REPORT INFORMATION
  Report Type: 
  Country: None (occurrence: None)
  Receive Date: 20091221
  Receipt Date: 20091221
  Transmission Date: 20100525
  Serious: Yes (Hospitalization)
  Sender: FDA-Public Use
  Company Number: None

PATIENT
  Age: 47 Year
  Sex: Female
  Weight: 50.8029 kg

DRUGS (2)
  1. BENDAMUSTINE CEPHALON [Suspect]
     Indication: BREAST CANCER METASTATIC
     Dosage: BENDAMUSTINE DAYS 1,2 OF 28 DAY IV
     Route: 042
     Dates: start: 20090616, end: 20091103
  2. ERLOTINIB OSI-PHARMACEUTICAL [Suspect]
     Indication: BREAST CANCER METASTATIC
     Dosage: ERLOTINIB DAYS 5-17 OF 28 DA PO
     Route: 048
     Dates: start: 20090621, end: 20091123

REACTIONS (4)
  - BRONCHITIS [None]
  - COUGH [None]
  - DYSPNOEA [None]
  - PNEUMONITIS [None]
